FAERS Safety Report 8221788-8 (Version None)
Quarter: 2012Q1

REPORT INFORMATION
  Report Type: 
  Country: None (occurrence: None)
  Receive Date: 20120320
  Receipt Date: 20120320
  Transmission Date: 20120608
  Serious: No
  Sender: FDA-Public Use
  Company Number: None

PATIENT
  Sex: Male
  Weight: 81.646 kg

DRUGS (1)
  1. EXCEDRIN (MIGRAINE) [Suspect]
     Indication: HEADACHE
     Dosage: 2
     Dates: start: 20110601, end: 20120210

REACTIONS (6)
  - HYPERTENSION [None]
  - HEART RATE INCREASED [None]
  - LYMPHADENOPATHY [None]
  - LOSS OF CONSCIOUSNESS [None]
  - DIZZINESS [None]
  - HYPERHIDROSIS [None]
